FAERS Safety Report 7437266-X (Version None)
Quarter: 2011Q2

REPORT INFORMATION
  Report Type: 
  Country: None (occurrence: None)
  Receive Date: 20110426
  Receipt Date: 20110419
  Transmission Date: 20111010
  Serious: Yes (Hospitalization)
  Sender: FDA-Public Use
  Company Number: FR-KINGPHARMUSA00001-K201100477

PATIENT
  Age: 83 Year
  Sex: Male

DRUGS (6)
  1. CORDARONE [Concomitant]
  2. KARDEGIC [Concomitant]
  3. LASIX [Concomitant]
  4. GLUCOPHAGE [Concomitant]
  5. CARDENSIEL [Concomitant]
  6. ALTACE [Suspect]
     Indication: HYPERTENSION
     Dosage: 2.5 MG, UNK
     Route: 048

REACTIONS (3)
  - DIARRHOEA [None]
  - DEHYDRATION [None]
  - RENAL FAILURE [None]
